FAERS Safety Report 15492285 (Version 1)
Quarter: 2018Q4

REPORT INFORMATION
  Report Type: Spontaneous
  Country: US (occurrence: US)
  Receive Date: 20181004
  Receipt Date: 20181004
  Transmission Date: 20190205
  Serious: Yes (Hospitalization)
  Sender: FDA-Public Use
  Company Number: None

PATIENT
  Age: 30 Month
  Sex: Male
  Weight: 13.1 kg

DRUGS (5)
  1. VINCRISTINE SULFATE. [Suspect]
     Active Substance: VINCRISTINE SULFATE
     Dates: end: 20180928
  2. 5-FLUOROURACIL (5-FU) [Concomitant]
     Active Substance: FLUOROURACIL
     Dates: end: 20180914
  3. DOXORUBICIN HYDROCHLORIDE. [Concomitant]
     Active Substance: DOXORUBICIN HYDROCHLORIDE
     Dates: end: 20180915
  4. CISPLATIN. [Concomitant]
     Active Substance: CISPLATIN
     Dates: end: 20180914
  5. ZINECARD [Concomitant]
     Active Substance: DEXRAZOXANE HYDROCHLORIDE
     Dates: end: 20180915

REACTIONS (5)
  - Electrolyte imbalance [None]
  - Weight decreased [None]
  - Inappropriate antidiuretic hormone secretion [None]
  - Hypophagia [None]
  - Hyponatraemia [None]

NARRATIVE: CASE EVENT DATE: 20180928
